FAERS Safety Report 4659321-X (Version None)
Quarter: 2005Q2

REPORT INFORMATION
  Report Type: 
  Country: None (occurrence: None)
  Receive Date: 20050511
  Receipt Date: 20050215
  Transmission Date: 20051028
  Serious: Yes (Hospitalization)
  Sender: FDA-Public Use
  Company Number: US-BOEHRINGER INGELHEIM PHARMMACEUTICALS, INC.-2005-BP-02415BP

PATIENT
  Age: 48 Year
  Sex: Female
  Weight: 80.7 kg

DRUGS (8)
  1. SPIRIVA [Suspect]
     Indication: CHRONIC OBSTRUCTIVE PULMONARY DISEASE
     Route: 055
     Dates: start: 20041004
  2. DIOVAN [Concomitant]
     Dates: start: 20030301
  3. PREVACID [Concomitant]
     Dates: start: 20010201
  4. ADVAIR [Concomitant]
     Dosage: 250/50
     Route: 055
     Dates: start: 20050110
  5. SINGULAIR [Concomitant]
     Dates: start: 20040906
  6. CRESTOR [Concomitant]
     Dates: start: 20040806
  7. AZULFIDINE [Concomitant]
     Dates: start: 19880101
  8. FOLIC ACID [Concomitant]
     Dates: start: 19880101

REACTIONS (5)
  - ANAEMIA [None]
  - CHOKING [None]
  - COUGH [None]
  - FOREIGN BODY TRAUMA [None]
  - GASTROINTESTINAL HAEMORRHAGE [None]
